FAERS Safety Report 16684800 (Version 1)
Quarter: 2019Q3

REPORT INFORMATION
  Report Type: Spontaneous
  Country: US (occurrence: US)
  Receive Date: 20190808
  Receipt Date: 20190808
  Transmission Date: 20191004
  Serious: No
  Sender: FDA-Public Use
  Company Number: US-PFIZER INC-2019340112

PATIENT
  Age: 51 Year
  Sex: Female
  Weight: 70.31 kg

DRUGS (1)
  1. ADVIL [Suspect]
     Active Substance: IBUPROFEN
     Indication: PAIN
     Dosage: 200 MG, TAKE 1 EVERY 4 TO 6 HOURS OR 2 CAN BE USED)
     Dates: start: 20190802, end: 20190802

REACTIONS (3)
  - Allergic oedema [Recovering/Resolving]
  - Drug hypersensitivity [Recovering/Resolving]
  - Allergic reaction to excipient [Recovering/Resolving]

NARRATIVE: CASE EVENT DATE: 20190802
